FAERS Safety Report 12995460 (Version 2)
Quarter: 2017Q4

REPORT INFORMATION
  Report Type: Spontaneous
  Country: RU (occurrence: RU)
  Receive Date: 20161202
  Receipt Date: 20171110
  Transmission Date: 20180320
  Serious: Yes (Death)
  Sender: FDA-Public Use
  Company Number: RU-JNJFOC-20161200857

PATIENT
  Sex: Female

DRUGS (2)
  1. DOXORUBICIN HYDROCHLORIDE. [Suspect]
     Active Substance: DOXORUBICIN HYDROCHLORIDE
     Indication: BREAST CANCER METASTATIC
     Route: 065
  2. DOXOUBICIN HYDROCHLORIDE [Suspect]
     Active Substance: DOXORUBICIN HYDROCHLORIDE
     Indication: BREAST CANCER METASTATIC
     Route: 065

REACTIONS (1)
  - Cardiac disorder [Fatal]
